FAERS Safety Report 4290385-1 (Version None)
Quarter: 2004Q1

REPORT INFORMATION
  Report Type: 
  Country: None (occurrence: None)
  Receive Date: 20040206
  Receipt Date: 20040206
  Transmission Date: 20041129
  Serious: Yes (Hospitalization)
  Sender: FDA-Public Use
  Company Number: None

PATIENT
  Age: 81 Year
  Sex: Female
  Weight: 66 kg

DRUGS (6)
  1. NATRECOR [Suspect]
     Indication: RESPIRATORY DISTRESS
     Dosage: 2.5MCG/KG BOLUS INTRAVENOUS
     Route: 040
     Dates: start: 20031114, end: 20031115
  2. NATRECOR [Suspect]
     Dosage: 0.01MCG/KG MIN INTRAVENOUS
     Route: 042
  3. KCL TAB [Concomitant]
  4. BUMETANIDE [Concomitant]
  5. DIGOXIN [Concomitant]
  6. ALPRAZOLAM [Concomitant]

REACTIONS (1)
  - HYPOTENSION [None]
